FAERS Safety Report 7571318-9 (Version None)
Quarter: 2011Q2

REPORT INFORMATION
  Report Type: 
  Country: None (occurrence: None)
  Receive Date: 20110624
  Receipt Date: 20110607
  Transmission Date: 20111010
  Serious: Yes (Hospitalization, Congenital Anomaly)
  Sender: FDA-Public Use
  Company Number: A0932724A

PATIENT
  Sex: Female
  Weight: 3.4 kg

DRUGS (4)
  1. MACROBID [Concomitant]
  2. PRENATE [Concomitant]
  3. PAXIL [Suspect]
     Dosage: 20MG PER DAY
     Route: 064
  4. BRETHINE [Concomitant]

REACTIONS (6)
  - PIERRE ROBIN SYNDROME [None]
  - PYLORIC STENOSIS [None]
  - CONGENITAL EUSTACHIAN TUBE ANOMALY [None]
  - CLEFT PALATE [None]
  - DRUG EXPOSURE DURING PREGNANCY [None]
  - CONDUCTIVE DEAFNESS [None]
